FAERS Safety Report 8991439 (Version 1)
Quarter: 2012Q4

REPORT INFORMATION
  Report Type: 
  Country: BR (occurrence: BR)
  Receive Date: 20121230
  Receipt Date: 20121230
  Transmission Date: 20130627
  Serious: Yes (Other)
  Sender: FDA-Public Use
  Company Number: BR-AMGEN-BRASP2012083569

PATIENT
  Age: 40 Year
  Sex: Male
  Weight: 82 kg

DRUGS (3)
  1. ENBREL [Suspect]
     Indication: ANKYLOSING SPONDYLITIS
     Dosage: 50 mg, 1x/week
     Route: 058
     Dates: start: 201111
  2. LOSARTAN [Concomitant]
     Indication: HYPERTENSION
     Dosage: two tablets (strength: 50mg)  a day
  3. ATENOLOL [Concomitant]
     Dosage: two tablets of 25 mg a day

REACTIONS (3)
  - Walking disability [Recovering/Resolving]
  - Skin exfoliation [Recovering/Resolving]
  - Pain [Recovering/Resolving]
